FAERS Safety Report 7622949-9 (Version None)
Quarter: 2011Q3

REPORT INFORMATION
  Report Type: 
  Country: None (occurrence: None)
  Receive Date: 20110720
  Receipt Date: 20110706
  Transmission Date: 20111222
  Serious: Yes (Hospitalization)
  Sender: FDA-Public Use
  Company Number: FR-KINGPHARMUSA00001-K201100236

PATIENT
  Sex: Male

DRUGS (17)
  1. SIMVASTATIN [Concomitant]
     Dosage: UNK
  2. LEVOTHYROXINE SODIUM [Concomitant]
     Dosage: UNK
     Dates: start: 20100501
  3. ALTACE [Suspect]
     Dosage: 10 MG, UNKNOWN
     Dates: start: 20100713
  4. WARFARIN SODIUM [Concomitant]
     Dosage: UNK
  5. AMIODARONE HCL [Suspect]
     Indication: VENTRICULAR ARRHYTHMIA
     Dosage: 200 MG, UNKNOWN
     Route: 048
     Dates: start: 20091208, end: 20091217
  6. AMIODARONE HCL [Suspect]
     Dosage: 200 MG, UNKNOWN
     Route: 048
     Dates: start: 20100708
  7. METFORMIN HCL [Concomitant]
     Dosage: UNK
     Dates: end: 20100712
  8. PROSCAR [Concomitant]
     Dosage: UNK
     Dates: start: 20100111
  9. FUROSEMIDE [Suspect]
     Dosage: 40 MG, UNKNOWN
     Dates: start: 20100729
  10. IMDUR [Concomitant]
     Dosage: UNK
  11. BISOPROLOL [Concomitant]
     Dosage: UNK
  12. NITROMEX [Concomitant]
     Dosage: UNK
  13. BEHEPAN [Concomitant]
     Dosage: UNK
  14. ALTACE [Suspect]
     Dosage: 10 MG, UNKNOWN
     Route: 048
     Dates: end: 20100711
  15. FUROSEMIDE [Suspect]
     Dosage: 40 MG, UNKNOWN
     Dates: end: 20100713
  16. SERENOA REPENS [Concomitant]
     Dosage: UNK
  17. DOXAZOSIN MESYLATE [Concomitant]
     Dosage: UNK
     Dates: start: 20100601

REACTIONS (3)
  - RENAL FAILURE ACUTE [None]
  - DEHYDRATION [None]
  - VENTRICULAR TACHYCARDIA [None]
